FAERS Safety Report 25971133 (Version 1)
Quarter: 2025Q4

REPORT INFORMATION
  Report Type: Spontaneous
  Country: JP (occurrence: JP)
  Receive Date: 20251028
  Receipt Date: 20251028
  Transmission Date: 20260118
  Serious: Yes (Other)
  Sender: Vancocin Italia
  Company Number: JP-Vancocin Italia S.r.l.-2187422

PATIENT
  Age: 65 Year
  Sex: Male

DRUGS (1)
  1. MULPLETA [Suspect]
     Active Substance: LUSUTROMBOPAG
     Indication: Thrombocytopenia

REACTIONS (4)
  - Arterial injury [Recovering/Resolving]
  - Portal vein thrombosis [Recovering/Resolving]
  - Shock haemorrhagic [Unknown]
  - Intra-abdominal haemorrhage [Recovering/Resolving]
